FAERS Safety Report 17251798 (Version 10)
Quarter: 2021Q4

REPORT INFORMATION
  Report Type: Spontaneous
  Country: US (occurrence: US)
  Receive Date: 20200109
  Receipt Date: 20211118
  Transmission Date: 20220303
  Serious: Yes (Other)
  Sender: FDA-Public Use
  Company Number: US-PFIZER INC-2019016348

PATIENT
  Age: 70 Year
  Sex: Female
  Weight: 52 kg

DRUGS (5)
  1. DETROL LA [Suspect]
     Active Substance: TOLTERODINE TARTRATE
     Indication: Pollakiuria
     Dosage: 4 MG, DAILY (ONE CAPSULE)
  2. DETROL LA [Suspect]
     Active Substance: TOLTERODINE TARTRATE
     Dosage: 8 MG, DAILY (TWO CAPSULES)
  3. DETROL LA [Suspect]
     Active Substance: TOLTERODINE TARTRATE
     Dosage: 8 MG, 1X/DAY (2 PO Q DAY (ONCE A DAY))
     Route: 048
  4. DETROL LA [Suspect]
     Active Substance: TOLTERODINE TARTRATE
     Dosage: 4 MG, 2X/DAY
     Route: 048
  5. DETROL LA [Suspect]
     Active Substance: TOLTERODINE TARTRATE
     Dosage: 4 MG, 2X/DAY
     Route: 048

REACTIONS (5)
  - Hernia [Unknown]
  - Aphonia [Unknown]
  - Vocal cord disorder [Unknown]
  - Feeling abnormal [Unknown]
  - Off label use [Unknown]
